FAERS Safety Report 18904428 (Version 1)
Quarter: 2021Q1

REPORT INFORMATION
  Report Type: Spontaneous
  Country: AU (occurrence: AU)
  Receive Date: 20210217
  Receipt Date: 20210217
  Transmission Date: 20210420
  Serious: Yes (Death, Other)
  Sender: FDA-Public Use
  Company Number: AU-009507513-2102AUS006177

PATIENT
  Age: 57 Year
  Sex: Female

DRUGS (5)
  1. PANADEINE FORTE [Suspect]
     Active Substance: ACETAMINOPHEN\CODEINE PHOSPHATE
  2. PROMETHAZINE HYDROCHLORIDE. [Suspect]
     Active Substance: PROMETHAZINE HYDROCHLORIDE
  3. MIRTAZAPINE. [Suspect]
     Active Substance: MIRTAZAPINE
  4. DIAZEPAM. [Suspect]
     Active Substance: DIAZEPAM
  5. NITRAZEPAM [Suspect]
     Active Substance: NITRAZEPAM

REACTIONS (2)
  - Toxicity to various agents [Fatal]
  - Completed suicide [Fatal]
